FAERS Safety Report 10072079 (Version 1)
Quarter: 2014Q2

REPORT INFORMATION
  Report Type: Spontaneous
  Country: US (occurrence: US)
  Receive Date: 20140411
  Receipt Date: 20140411
  Transmission Date: 20141212
  Serious: Yes (Other)
  Sender: FDA-Public Use
  Company Number: US-TEVA-474680USA

PATIENT
  Age: 40 Year
  Sex: Male

DRUGS (2)
  1. CISPLATIN [Suspect]
     Indication: ACTH-PRODUCING PITUITARY TUMOUR
     Dosage: 80 MG/M2 EVERY 3 WEEKS
     Route: 065
     Dates: start: 201107
  2. ETOPOSIDE [Suspect]
     Indication: ACTH-PRODUCING PITUITARY TUMOUR
     Dosage: 100 MG/M2 EVERY 3 WEEKS
     Route: 065
     Dates: start: 201107

REACTIONS (1)
  - Secondary adrenocortical insufficiency [Recovering/Resolving]
